FAERS Safety Report 5923008-3 (Version None)
Quarter: 2008Q4

REPORT INFORMATION
  Report Type: 
  Country: None (occurrence: None)
  Receive Date: 20081018
  Receipt Date: 20081006
  Transmission Date: 20090506
  Serious: Yes (Other)
  Sender: FDA-Public Use
  Company Number: US-PFIZER INC-2008064343

PATIENT
  Sex: Female
  Weight: 48.1 kg

DRUGS (5)
  1. LYRICA [Suspect]
     Indication: NEURALGIA
     Route: 048
     Dates: start: 20080701, end: 20080712
  2. KLONOPIN [Suspect]
  3. BENZODIAZEPINE DERIVATIVES [Suspect]
  4. ATENOLOL [Concomitant]
     Indication: MENOPAUSAL SYMPTOMS
     Route: 048
  5. ATENOLOL [Concomitant]
     Indication: PALPITATIONS

REACTIONS (26)
  - ABNORMAL SENSATION IN EYE [None]
  - ANXIETY [None]
  - BLINDNESS TRANSIENT [None]
  - CONVULSION [None]
  - DEAFNESS UNILATERAL [None]
  - DEPERSONALISATION [None]
  - DEPRESSION [None]
  - DISTURBANCE IN ATTENTION [None]
  - DRUG DEPENDENCE [None]
  - DRUG DOSE OMISSION [None]
  - DRUG TOXICITY [None]
  - DRUG WITHDRAWAL SYNDROME [None]
  - FATIGUE [None]
  - FEELING ABNORMAL [None]
  - FUNGAL INFECTION [None]
  - HEADACHE [None]
  - INTENTIONAL DRUG MISUSE [None]
  - MUSCULOSKELETAL STIFFNESS [None]
  - NAUSEA [None]
  - PALPITATIONS [None]
  - PANIC REACTION [None]
  - SLEEP DISORDER [None]
  - SWELLING [None]
  - TINNITUS [None]
  - VISION BLURRED [None]
  - VISUAL IMPAIRMENT [None]
